FAERS Safety Report 24277760 (Version 1)
Quarter: 2024Q3

REPORT INFORMATION
  Report Type: Spontaneous
  Country: US (occurrence: US)
  Receive Date: 20240903
  Receipt Date: 20240903
  Transmission Date: 20241017
  Serious: No
  Sender: RECKITT BENCKISER
  Company Number: US-PROD-AS2-212756134-RB-081751-2024

PATIENT
  Age: 78 Year
  Sex: Female
  Weight: 138 kg

DRUGS (1)
  1. MUCINEX [Suspect]
     Active Substance: GUAIFENESIN
     Indication: Secretion discharge
     Dosage: 2 DOSAGE FORM,UNK (EIGHT TIMES)
     Route: 048
     Dates: start: 20231209

REACTIONS (1)
  - Drug ineffective [Not Recovered/Not Resolved]

NARRATIVE: CASE EVENT DATE: 20231209
